FAERS Safety Report 4856704-X (Version None)
Quarter: 2005Q4

REPORT INFORMATION
  Report Type: 
  Country: None (occurrence: None)
  Receive Date: 20051219
  Receipt Date: 20050114
  Transmission Date: 20060501
  Serious: No
  Sender: FDA-Public Use
  Company Number: US-GLAXOSMITHKLINE-A0540753A

PATIENT
  Age: 59 Year
  Sex: Female

DRUGS (2)
  1. NICODERM CQ [Suspect]
     Dates: start: 20050113, end: 20050114
  2. NEURONTIN [Concomitant]

REACTIONS (5)
  - HERPES ZOSTER [None]
  - INFLAMMATION [None]
  - INSOMNIA [None]
  - PALPITATIONS [None]
  - PRURITUS [None]
